FAERS Safety Report 21761964 (Version 1)
Quarter: 2022Q4

REPORT INFORMATION
  Report Type: Spontaneous
  Country: US (occurrence: US)
  Receive Date: 20221221
  Receipt Date: 20221221
  Transmission Date: 20230113
  Serious: No
  Sender: FDA-Public Use
  Company Number: US-Blueprint Medicines Corporation-658

PATIENT
  Sex: Female

DRUGS (1)
  1. AYVAKIT [Suspect]
     Active Substance: AVAPRITINIB
     Indication: Brain neoplasm malignant
     Route: 065
     Dates: start: 20221118

REACTIONS (8)
  - Amnesia [Unknown]
  - Bradyphrenia [Unknown]
  - Diarrhoea [Unknown]
  - Decreased appetite [Unknown]
  - Platelet count abnormal [Unknown]
  - Periorbital swelling [Unknown]
  - Peripheral swelling [Unknown]
  - Off label use [Unknown]
